FAERS Safety Report 12935368 (Version 1)
Quarter: 2016Q4

REPORT INFORMATION
  Report Type: Spontaneous
  Country: US (occurrence: US)
  Receive Date: 20161114
  Receipt Date: 20161114
  Transmission Date: 20170207
  Serious: No
  Sender: FDA-Public Use
  Company Number: US-JAZZ-2016-US-018780

PATIENT
  Sex: Male

DRUGS (24)
  1. NORVIR [Concomitant]
     Active Substance: RITONAVIR
  2. CYCLOBENZAPRINE                    /00428402/ [Concomitant]
     Active Substance: CYCLOBENZAPRINE
  3. ASCOMP WITH CODEINE [Concomitant]
     Active Substance: ASPIRIN\BUTALBITAL\CAFFEINE\CODEINE PHOSPHATE
  4. DIAZEPAM. [Concomitant]
     Active Substance: DIAZEPAM
  5. ATIVAN [Concomitant]
     Active Substance: LORAZEPAM
  6. CONCERTA [Concomitant]
     Active Substance: METHYLPHENIDATE HYDROCHLORIDE
  7. PROMETHAZINE                       /00033002/ [Suspect]
     Active Substance: PROMETHAZINE HYDROCHLORIDE
     Indication: NAUSEA
  8. AMLODIPINE BESYLATE. [Concomitant]
     Active Substance: AMLODIPINE BESYLATE
  9. RITALIN [Concomitant]
     Active Substance: METHYLPHENIDATE HYDROCHLORIDE
  10. LEXIVA [Concomitant]
     Active Substance: FOSAMPRENAVIR CALCIUM
  11. XYREM [Suspect]
     Active Substance: SODIUM OXYBATE
     Indication: NARCOLEPSY
     Dosage: 1.5 G, BID
     Route: 048
     Dates: start: 200808, end: 200808
  12. FENTANYL                           /00174602/ [Concomitant]
     Active Substance: FENTANYL
  13. OXYCODONE HYDROCHLORIDE. [Concomitant]
     Active Substance: OXYCODONE HYDROCHLORIDE
  14. PREZCOBIX [Concomitant]
     Active Substance: COBICISTAT\DARUNAVIR ETHANOLATE
  15. PROZAC [Concomitant]
     Active Substance: FLUOXETINE HYDROCHLORIDE
  16. AUGMENTIN [Concomitant]
     Active Substance: AMOXICILLIN\CLAVULANATE POTASSIUM
  17. TRUVADA [Concomitant]
     Active Substance: EMTRICITABINE\TENOFOVIR DISOPROXIL FUMARATE
  18. PREZISTA [Concomitant]
     Active Substance: DARUNAVIR ETHANOLATE
  19. XYREM [Suspect]
     Active Substance: SODIUM OXYBATE
     Indication: CATAPLEXY
     Dosage: DOSE ADJUSTMENTS
     Route: 048
     Dates: start: 200808, end: 200810
  20. NEXIUM [Concomitant]
     Active Substance: ESOMEPRAZOLE MAGNESIUM
  21. XYREM [Suspect]
     Active Substance: SODIUM OXYBATE
     Dosage: 3 G, TID
     Route: 048
     Dates: start: 200810
  22. CELEXA [Concomitant]
     Active Substance: CITALOPRAM HYDROBROMIDE
  23. FIORINAL [Concomitant]
     Active Substance: ASPIRIN\BUTALBITAL\CAFFEINE
  24. PHENERGAN [Concomitant]
     Active Substance: PROMETHAZINE HYDROCHLORIDE

REACTIONS (3)
  - Nausea [Unknown]
  - Somnolence [Unknown]
  - Headache [Recovering/Resolving]
